FAERS Safety Report 6305260-8 (Version None)
Quarter: 2009Q3

REPORT INFORMATION
  Report Type: 
  Country: None (occurrence: None)
  Receive Date: 20090811
  Receipt Date: 20090731
  Transmission Date: 20100115
  Serious: Yes (Hospitalization, Other)
  Sender: FDA-Public Use
  Company Number: PHEH2009US06868

PATIENT
  Sex: Female

DRUGS (4)
  1. GLEEVEC [Suspect]
     Indication: CHRONIC MYELOID LEUKAEMIA
     Dosage: 400 MG, QD
     Route: 048
     Dates: start: 20061228
  2. METOPROLOL [Concomitant]
     Dosage: UNK
     Route: 048
  3. ASPIRIN [Concomitant]
     Dosage: UNK
     Route: 048
  4. ZANTAC [Concomitant]
     Dosage: UNK
     Route: 048

REACTIONS (6)
  - CEREBROVASCULAR ACCIDENT [None]
  - DYSARTHRIA [None]
  - DYSPHAGIA [None]
  - HEMIPARESIS [None]
  - HYPOAESTHESIA [None]
  - PARAESTHESIA [None]
